FAERS Safety Report 8879688 (Version 2)
Quarter: 2012Q4

REPORT INFORMATION
  Report Type: 
  Country: FR (occurrence: FR)
  Receive Date: 20121101
  Receipt Date: 20121108
  Transmission Date: 20130627
  Serious: Yes (Hospitalization)
  Sender: FDA-Public Use
  Company Number: FR-AMGEN-FRASP2012069106

PATIENT
  Age: 59 Year
  Sex: Female
  Weight: 52 kg

DRUGS (7)
  1. ENBREL [Suspect]
     Indication: PSORIATIC ARTHROPATHY
     Dosage: 50 mg, weekly
     Route: 058
     Dates: start: 20120904, end: 20120911
  2. INIPOMP [Concomitant]
     Dosage: 20 mg daily
  3. APRANAX                            /00256201/ [Concomitant]
     Dosage: 550 mg,or 1.5 tab daily dose
  4. LEXOMIL [Concomitant]
     Dosage: 1/4 tablet, 2x/day
  5. DERMOVAL                           /00008501/ [Concomitant]
     Indication: RASH
     Dosage: UNK
  6. DOLIPRANE [Concomitant]
     Dosage: 1000 mg, 4x/day
  7. RIFINAH [Concomitant]
     Dosage: 2 tablets daily dose
     Dates: end: 20120928

REACTIONS (8)
  - Hypersensitivity [Recovering/Resolving]
  - Diarrhoea [Recovered/Resolved]
  - Pruritus [Recovered/Resolved]
  - Pain [Unknown]
  - Nausea [Unknown]
  - Abdominal pain [Unknown]
  - Injection site erythema [Recovered/Resolved]
  - Injection site rash [Recovered/Resolved]
